FAERS Safety Report 5088952-0 (Version None)
Quarter: 2006Q3

REPORT INFORMATION
  Report Type: 
  Country: None (occurrence: None)
  Receive Date: 20060825
  Receipt Date: 20060816
  Transmission Date: 20061208
  Serious: Yes (Other)
  Sender: FDA-Public Use
  Company Number: US-JNJFOC-20050201430

PATIENT
  Age: 94 Year
  Sex: Female
  Weight: 49.9 kg

DRUGS (9)
  1. REMINYL [Suspect]
     Indication: DEMENTIA
     Route: 048
  2. AMARYL [Suspect]
     Indication: DRUG USE FOR UNKNOWN INDICATION
     Route: 048
  3. SEROQUEL [Concomitant]
     Indication: DEMENTIA
     Dosage: 50MG IN AM/150MG AT HS
  4. HALDOL [Concomitant]
     Indication: DRUG USE FOR UNKNOWN INDICATION
  5. CARDIZEM CD [Concomitant]
  6. SODIUM BICARBONATE [Concomitant]
     Dosage: 2 TABLETS DAILY (DOSE UNSPECIFIED)
     Route: 048
  7. COLACE [Concomitant]
  8. FERROUS SULFATE TAB [Concomitant]
  9. HEPARIN [Concomitant]

REACTIONS (2)
  - HYPOGLYCAEMIA [None]
  - MEDICATION ERROR [None]
